FAERS Safety Report 6698696-7 (Version None)
Quarter: 2010Q2

REPORT INFORMATION
  Report Type: 
  Country: None (occurrence: None)
  Receive Date: 20100427
  Receipt Date: 20091105
  Transmission Date: 20101027
  Serious: No
  Sender: FDA-Public Use
  Company Number: US-ASTRAZENECA-2009SE25034

PATIENT
  Age: 22377 Day
  Sex: Male

DRUGS (1)
  1. ZOMIG [Suspect]
     Route: 048

REACTIONS (2)
  - DRUG INEFFECTIVE [None]
  - MIGRAINE [None]
